FAERS Safety Report 15118060 (Version 2)
Quarter: 2018Q3

REPORT INFORMATION
  Report Type: Report from Study
  Country: AT (occurrence: AT)
  Receive Date: 20180707
  Receipt Date: 20180720
  Transmission Date: 20181010
  Serious: Yes (Death)
  Sender: FDA-Public Use
  Company Number: AT-AMGEN-AUTNI2018092062

PATIENT
  Age: 53 Year
  Sex: Male

DRUGS (4)
  1. BLINATUMOMAB [Suspect]
     Active Substance: BLINATUMOMAB
     Indication: LYMPHOMA
     Dosage: 9 MUG, CONTINUING
     Route: 042
     Dates: start: 20180622, end: 20180629
  2. TRIMETOPRIM [Concomitant]
     Active Substance: TRIMETHOPRIM
     Dosage: 850 MG, QD
     Route: 048
     Dates: start: 20180615, end: 20180703
  3. VALACYCLOVIR [Concomitant]
     Active Substance: VALACYCLOVIR HYDROCHLORIDE
     Dosage: 500 MG, BID
     Route: 048
     Dates: start: 20180615, end: 20180703
  4. MEROPENEM. [Concomitant]
     Active Substance: MEROPENEM
     Dosage: 2 G, TID
     Route: 042
     Dates: start: 20180624, end: 20180702

REACTIONS (3)
  - Pyrexia [Recovered/Resolved]
  - Fatigue [Not Recovered/Not Resolved]
  - Lymphoma [Fatal]

NARRATIVE: CASE EVENT DATE: 20180623
